FAERS Safety Report 6242030-3 (Version None)
Quarter: 2009Q2

REPORT INFORMATION
  Report Type: 
  Country: None (occurrence: None)
  Receive Date: 20090623
  Receipt Date: 20090609
  Transmission Date: 20091009
  Serious: Yes (Disabling)
  Sender: FDA-Public Use
  Company Number: PHHY2009PT22580

PATIENT
  Sex: Female
  Weight: 56 kg

DRUGS (2)
  1. FEMARA [Suspect]
     Indication: OVULATION INDUCTION
     Dosage: 5 MG DAILY
     Route: 048
     Dates: start: 20070901
  2. CONTACT LAXATIVES [Concomitant]

REACTIONS (2)
  - ASTHENIA [None]
  - HYPOTENSION [None]
